FAERS Safety Report 15244792 (Version 1)
Quarter: 2018Q3

REPORT INFORMATION
  Report Type: Spontaneous
  Country: US (occurrence: US)
  Receive Date: 20180712
  Receipt Date: 20180712
  Transmission Date: 20181010
  Serious: No
  Sender: FDA-Public Use
  Company Number: None

PATIENT
  Age: 32 Year
  Sex: Female

DRUGS (1)
  1. COSENTYX [Suspect]
     Active Substance: SECUKINUMAB
     Dates: start: 20180220, end: 20180629

REACTIONS (7)
  - Alopecia [None]
  - Hair texture abnormal [None]
  - Trichorrhexis [None]
  - Drug effect decreased [None]
  - Abdominal discomfort [None]
  - Epigastric discomfort [None]
  - Diarrhoea [None]

NARRATIVE: CASE EVENT DATE: 20180301
